FAERS Safety Report 8954622 (Version 1)
Quarter: 2012Q4

REPORT INFORMATION
  Report Type: Spontaneous
  Country: US (occurrence: None)
  Receive Date: 20121205
  Receipt Date: 20121205
  Transmission Date: 20130627
  Serious: Yes (Other)
  Sender: FDA-Public Use
  Company Number: None

PATIENT
  Age: 59 Year
  Sex: Female

DRUGS (1)
  1. COPAXONE [Suspect]

REACTIONS (11)
  - Urticaria [None]
  - Rash [None]
  - Skin irritation [None]
  - Dizziness [None]
  - Hyperhidrosis [None]
  - Chest pain [None]
  - Dyspnoea [None]
  - Nausea [None]
  - Incontinence [None]
  - Chills [None]
  - Mobility decreased [None]
